FAERS Safety Report 5687810-8 (Version None)
Quarter: 2008Q1

REPORT INFORMATION
  Report Type: 
  Country: None (occurrence: None)
  Receive Date: 20080328
  Receipt Date: 20061010
  Transmission Date: 20080703
  Serious: No
  Sender: FDA-Public Use
  Company Number: US-BAYER-US-2006-030532

PATIENT
  Age: 19 Year
  Sex: Female
  Weight: 112 kg

DRUGS (3)
  1. MIRENA [Suspect]
     Route: 015
     Dates: start: 20050727, end: 20061009
  2. TRILEPTAL [Concomitant]
     Indication: CONVULSION
  3. LEVOXYL [Concomitant]
     Indication: HYPOTHYROIDISM

REACTIONS (4)
  - ABDOMINAL PAIN [None]
  - IUCD COMPLICATION [None]
  - METRORRHAGIA [None]
  - PELVIC PAIN [None]
